FAERS Safety Report 7626517-4 (Version None)
Quarter: 2011Q3

REPORT INFORMATION
  Report Type: 
  Country: None (occurrence: None)
  Receive Date: 20110714
  Receipt Date: 20110628
  Transmission Date: 20111222
  Serious: Yes (Hospitalization)
  Sender: FDA-Public Use
  Company Number: PTU-11-04

PATIENT
  Age: 29 Year
  Sex: Female

DRUGS (2)
  1. PROPYLTHIOURACIL [Suspect]
     Indication: BASEDOW'S DISEASE
     Dosage: 50MG/EVERY 8HRS
  2. METHIMAZOLE [Concomitant]

REACTIONS (13)
  - VOMITING [None]
  - BLOOD BILIRUBIN INCREASED [None]
  - LIVER TRANSPLANT [None]
  - JAUNDICE [None]
  - NAUSEA [None]
  - FATIGUE [None]
  - ABDOMINAL PAIN UPPER [None]
  - INTERNATIONAL NORMALISED RATIO INCREASED [None]
  - ALANINE AMINOTRANSFERASE INCREASED [None]
  - BLOOD ALKALINE PHOSPHATASE INCREASED [None]
  - PROTHROMBIN TIME PROLONGED [None]
  - BILIRUBIN CONJUGATED INCREASED [None]
  - HEPATIC ENCEPHALOPATHY [None]
